FAERS Safety Report 7797213-8 (Version None)
Quarter: 2011Q4

REPORT INFORMATION
  Report Type: 
  Country: None (occurrence: None)
  Receive Date: 20111005
  Receipt Date: 20110929
  Transmission Date: 20120403
  Serious: Yes (Death, Hospitalization, Other)
  Sender: FDA-Public Use
  Company Number: PHHY2011CN85857

PATIENT
  Age: 30 Year
  Sex: Male

DRUGS (2)
  1. SEBIVO [Suspect]
     Indication: HEPATITIS B
     Dosage: 600 MG, QD
     Route: 048
     Dates: start: 20101101, end: 20110915
  2. INTERFERON ALFA [Concomitant]
     Dosage: UNK UKN, UNK

REACTIONS (32)
  - MYOCARDIAL DEPRESSION [None]
  - DECREASED APPETITE [None]
  - OEDEMA PERIPHERAL [None]
  - HEPATIC CIRRHOSIS [None]
  - MUSCULAR WEAKNESS [None]
  - BLOOD LACTATE DEHYDROGENASE INCREASED [None]
  - URINE KETONE BODY PRESENT [None]
  - LOSS OF CONSCIOUSNESS [None]
  - PALPITATIONS [None]
  - CARDIAC DEATH [None]
  - URINE OUTPUT DECREASED [None]
  - TINNITUS [None]
  - HEART RATE INCREASED [None]
  - HEPATIC NEOPLASM MALIGNANT [None]
  - BLOOD CREATINE PHOSPHOKINASE MB INCREASED [None]
  - DYSPNOEA [None]
  - ARRHYTHMIA [None]
  - SINUS TACHYCARDIA [None]
  - METABOLIC ACIDOSIS [None]
  - BLOOD CREATINE PHOSPHOKINASE INCREASED [None]
  - RENAL FAILURE [None]
  - ASTHENIA [None]
  - NAUSEA [None]
  - CARDIAC FAILURE ACUTE [None]
  - CHEST DISCOMFORT [None]
  - CARDIAC ARREST [None]
  - RHABDOMYOLYSIS [None]
  - MALAISE [None]
  - BLOOD PRESSURE DECREASED [None]
  - MYALGIA [None]
  - VOMITING [None]
  - CIRCULATORY COLLAPSE [None]
